FAERS Safety Report 9940546 (Version 1)
Quarter: 2014Q1

REPORT INFORMATION
  Report Type: Spontaneous
  Country: GB (occurrence: GB)
  Receive Date: 20140303
  Receipt Date: 20140303
  Transmission Date: 20141002
  Serious: Yes (Hospitalization)
  Sender: FDA-Public Use
  Company Number: GB-MYLANLABS-2014S1003986

PATIENT
  Age: 73 Year
  Sex: Female

DRUGS (5)
  1. LANSOPRAZOLE [Suspect]
     Route: 065
  2. BISOPROLOL [Concomitant]
     Route: 065
  3. ASPIRIN [Concomitant]
     Route: 065
  4. ATORVASTATIN [Concomitant]
     Route: 065
  5. CALCICHEW D3 [Concomitant]
     Dosage: TWICE DAILY
     Route: 065

REACTIONS (5)
  - Hypomagnesaemia [Recovered/Resolved]
  - Nausea [Unknown]
  - Vomiting [Unknown]
  - Gait disturbance [Unknown]
  - Lethargy [Unknown]
